FAERS Safety Report 22046393 (Version 1)
Quarter: 2023Q1

REPORT INFORMATION
  Report Type: Spontaneous
  Country: US (occurrence: US)
  Receive Date: 20230228
  Receipt Date: 20230228
  Transmission Date: 20230418
  Serious: No
  Sender: FDA-Public Use
  Company Number: US-BAUSCH-BL-2023-003450

PATIENT
  Age: 40 Year
  Sex: Male
  Weight: 68.100 kg

DRUGS (1)
  1. APRISO [Suspect]
     Active Substance: MESALAMINE
     Indication: Colitis ulcerative
     Dosage: 4 CAPSULES QD
     Route: 048

REACTIONS (3)
  - Abdominal discomfort [Unknown]
  - Product storage error [Unknown]
  - Product quality issue [Unknown]
